FAERS Safety Report 5147044-2 (Version None)
Quarter: 2006Q4

REPORT INFORMATION
  Report Type: 
  Country: None (occurrence: None)
  Receive Date: 20061103
  Receipt Date: 20061020
  Transmission Date: 20070319
  Serious: Yes (Hospitalization, Other)
  Sender: FDA-Public Use
  Company Number: 2006131894

PATIENT
  Age: 85 Year
  Sex: Male

DRUGS (6)
  1. AMLODIPINE [Suspect]
  2. ASPIRIN [Suspect]
     Dosage: 100 MG (DAILY)
  3. ORGANIC NITRATES (ORGANIC NITRATES) [Suspect]
  4. OMEPRAZOLE [Suspect]
  5. AMIODARONE HCL [Suspect]
  6. EZETIMIBE (EZETIMIBE) [Suspect]

REACTIONS (14)
  - ABDOMINAL HAEMATOMA [None]
  - ANAEMIA [None]
  - ANGINA UNSTABLE [None]
  - ATRIOVENTRICULAR BLOCK FIRST DEGREE [None]
  - BLOOD PRESSURE INCREASED [None]
  - CHILLS [None]
  - ECCHYMOSIS [None]
  - FLANK PAIN [None]
  - GENERAL PHYSICAL HEALTH DETERIORATION [None]
  - HYPOVENTILATION [None]
  - MYCOPLASMA SEROLOGY POSITIVE [None]
  - OEDEMA [None]
  - RESPIRATORY TRACT INFECTION [None]
  - VENOUS INSUFFICIENCY [None]
